FAERS Safety Report 7040276-8 (Version None)
Quarter: 2010Q4

REPORT INFORMATION
  Report Type: 
  Country: None (occurrence: None)
  Receive Date: 20101012
  Receipt Date: 20101004
  Transmission Date: 20110411
  Serious: Yes (Hospitalization, Other)
  Sender: FDA-Public Use
  Company Number: US-ABBOTT-10P-163-0676409-00

PATIENT
  Sex: Female
  Weight: 51.756 kg

DRUGS (1)
  1. HUMIRA [Suspect]
     Indication: CROHN'S DISEASE
     Route: 058

REACTIONS (4)
  - CROHN'S DISEASE [None]
  - HAEMORRHAGE [None]
  - INTESTINAL OBSTRUCTION [None]
  - PROCEDURAL PAIN [None]
